FAERS Safety Report 15023114 (Version 1)
Quarter: 2018Q2

REPORT INFORMATION
  Report Type: Spontaneous
  Country: US (occurrence: US)
  Receive Date: 20180618
  Receipt Date: 20180618
  Transmission Date: 20180711
  Serious: Yes (Death)
  Sender: FDA-Public Use
  Company Number: US-TESARO INC.-TS50-00349-2018USA

PATIENT
  Age: 70 Year
  Sex: Female

DRUGS (2)
  1. VARUBI [Suspect]
     Active Substance: ROLAPITANT
     Indication: VOMITING
  2. VARUBI [Suspect]
     Active Substance: ROLAPITANT
     Indication: NAUSEA
     Dosage: 180 MG 1- 2 HOURS, PRIOR TO CHEMO
     Route: 048
     Dates: start: 201805

REACTIONS (1)
  - Death [Fatal]

NARRATIVE: CASE EVENT DATE: 20180528
